FAERS Safety Report 19781744 (Version 1)
Quarter: 2021Q3

REPORT INFORMATION
  Report Type: Spontaneous
  Country: US (occurrence: US)
  Receive Date: 20210902
  Receipt Date: 20210902
  Transmission Date: 20211014
  Serious: No
  Sender: FDA-Public Use
  Company Number: US-MYLANLABS-2021M1052380

PATIENT
  Sex: Female
  Weight: 65 kg

DRUGS (1)
  1. ESTRADIOL TRANSDERMAL SYSTEM [Suspect]
     Active Substance: ESTRADIOL
     Indication: HORMONE REPLACEMENT THERAPY
     Dosage: 0.1 MILLIGRAM, QD  (TWICE WEEKLY)
     Route: 062

REACTIONS (7)
  - Product adhesion issue [Not Recovered/Not Resolved]
  - Adverse event [Unknown]
  - Acne [Unknown]
  - Mucosal dryness [Unknown]
  - Hormone level abnormal [Unknown]
  - Malaise [Unknown]
  - Skin reaction [Unknown]
